FAERS Safety Report 11575868 (Version 2)
Quarter: 2015Q4

REPORT INFORMATION
  Report Type: Spontaneous
  Country: AU (occurrence: AU)
  Receive Date: 20150930
  Receipt Date: 20151016
  Transmission Date: 20160304
  Serious: Yes (Other)
  Sender: FDA-Public Use
  Company Number: AU-PFIZER INC-2015322966

PATIENT
  Age: 45 Year
  Sex: Male

DRUGS (1)
  1. XYLOCAINE /00056401/ [Suspect]
     Active Substance: EPINEPHRINE\LIDOCAINE HYDROCHLORIDE
     Indication: LOCAL ANAESTHESIA
     Dosage: 20 MG/ML LIGNOCAINE HYDROCHLORIDE WITH 1.2 ?G/ML ADRENALINE
     Route: 013

REACTIONS (5)
  - Mydriasis [Recovered/Resolved]
  - Eyelid ptosis [Recovered/Resolved]
  - Incorrect route of drug administration [Recovered/Resolved]
  - Ophthalmoplegia [Recovered/Resolved]
  - Blindness [Recovered/Resolved]
